FAERS Safety Report 8137949-2 (Version None)
Quarter: 2012Q1

REPORT INFORMATION
  Report Type: 
  Country: None (occurrence: None)
  Receive Date: 20120215
  Receipt Date: 20120206
  Transmission Date: 20120608
  Serious: Yes (Hospitalization)
  Sender: FDA-Public Use
  Company Number: US-CELGENEUS-163-21880-12010285

PATIENT
  Sex: Male

DRUGS (5)
  1. VESICARE [Concomitant]
     Indication: URINARY TRACT DISORDER
     Dosage: 10 MILLIGRAM
     Route: 048
  2. VASOTEC [Concomitant]
     Indication: BLOOD PRESSURE
     Dosage: 10 MILLIGRAM
     Route: 048
  3. REVLIMID [Suspect]
     Indication: MULTIPLE MYELOMA
     Dosage: 10 MILLIGRAM
     Route: 048
     Dates: start: 20111220
  4. FERROUS SULFATE TAB [Concomitant]
     Dosage: 325 MILLIGRAM
     Route: 048
  5. OXYBUTINYN [Concomitant]
     Indication: URINARY TRACT DISORDER
     Dosage: 10 MILLIGRAM
     Route: 048

REACTIONS (4)
  - INTERNATIONAL NORMALISED RATIO INCREASED [None]
  - ASTHENIA [None]
  - PYREXIA [None]
  - FULL BLOOD COUNT DECREASED [None]
